FAERS Safety Report 5233507-8 (Version None)
Quarter: 2007Q1

REPORT INFORMATION
  Report Type: 
  Country: None (occurrence: None)
  Receive Date: 20070206
  Receipt Date: 20070126
  Transmission Date: 20070707
  Serious: Yes (Hospitalization)
  Sender: FDA-Public Use
  Company Number: 235658

PATIENT
  Age: 29 Year
  Sex: Male

DRUGS (6)
  1. XOLAIR [Suspect]
     Dosage: 375 MG, Q2W, SUBCUTANEOUS
     Route: 058
     Dates: start: 20061012
  2. SYMBICORT [Concomitant]
  3. SPECIAFOLDINE (FOLIC ACID) [Concomitant]
  4. SINGULAIR [Concomitant]
  5. OMEPRAZOLE [Concomitant]
  6. CETIRIZINE HCL [Concomitant]

REACTIONS (2)
  - GUILLAIN-BARRE SYNDROME [None]
  - NEUROPATHY [None]
